FAERS Safety Report 18236226 (Version 4)
Quarter: 2023Q2

REPORT INFORMATION
  Report Type: Spontaneous
  Country: BE (occurrence: BE)
  Receive Date: 20200906
  Receipt Date: 20230613
  Transmission Date: 20230721
  Serious: Yes (Other)
  Sender: FDA-Public Use
  Company Number: BE-ROCHE-2658145

PATIENT
  Sex: Male
  Weight: 70 kg

DRUGS (4)
  1. VALCYTE [Suspect]
     Active Substance: VALGANCICLOVIR HYDROCHLORIDE
     Indication: Cytomegalovirus infection reactivation
     Route: 065
     Dates: start: 20200807, end: 20200821
  2. VALCYTE [Suspect]
     Active Substance: VALGANCICLOVIR HYDROCHLORIDE
     Dosage: 06/AUG/2020 MOST RECENT DOSE
     Route: 065
     Dates: start: 20200824
  3. GANCICLOVIR [Suspect]
     Active Substance: GANCICLOVIR
     Indication: Cytomegalovirus infection reactivation
     Route: 042
     Dates: start: 20200724, end: 20200806
  4. GANCICLOVIR [Suspect]
     Active Substance: GANCICLOVIR
     Route: 042
     Dates: start: 20200724

REACTIONS (3)
  - Cytomegalovirus infection reactivation [Unknown]
  - Viral load increased [Not Recovered/Not Resolved]
  - Drug ineffective [Unknown]
